FAERS Safety Report 25851471 (Version 1)
Quarter: 2025Q3

REPORT INFORMATION
  Report Type: Spontaneous
  Country: GB (occurrence: GB)
  Receive Date: 20250926
  Receipt Date: 20250926
  Transmission Date: 20251020
  Serious: Yes (Other)
  Sender: MYLAN
  Company Number: GB-MYLANLABS-2025M1081897

PATIENT
  Age: 4 Decade
  Sex: Male

DRUGS (9)
  1. CLOZAPINE [Interacting]
     Active Substance: CLOZAPINE
     Indication: Schizophrenia
  2. CLOZAPINE [Interacting]
     Active Substance: CLOZAPINE
  3. RIFAMPIN [Interacting]
     Active Substance: RIFAMPIN
     Indication: Acne cystic
     Dosage: 300 MILLIGRAM, BID
     Dates: start: 2024, end: 202408
  4. RIFAMPIN [Interacting]
     Active Substance: RIFAMPIN
     Indication: Subcutaneous abscess
  5. ARIPIPRAZOLE [Suspect]
     Active Substance: ARIPIPRAZOLE
     Indication: Schizophrenia
  6. OLANZAPINE [Suspect]
     Active Substance: OLANZAPINE
     Indication: Schizophrenia
  7. FLUPENTIXOL [Suspect]
     Active Substance: FLUPENTIXOL
     Indication: Schizophrenia
  8. PALIPERIDONE [Suspect]
     Active Substance: PALIPERIDONE
     Indication: Schizophrenia
  9. CLINDAMYCIN [Concomitant]
     Active Substance: CLINDAMYCIN
     Indication: Acne cystic
     Dosage: 300 MILLIGRAM, BID
     Dates: start: 2024

REACTIONS (4)
  - Drug level decreased [Recovering/Resolving]
  - Tachycardia [Recovered/Resolved]
  - Drug interaction [Recovering/Resolving]
  - Drug ineffective [Unknown]

NARRATIVE: CASE EVENT DATE: 20160101
